FAERS Safety Report 17596029 (Version 1)
Quarter: 2020Q1

REPORT INFORMATION
  Report Type: Report from Study
  Country: None (occurrence: US)
  Receive Date: 20200330
  Receipt Date: 20200330
  Transmission Date: 20200409
  Serious: Yes (Other)
  Sender: FDA-Public Use
  Company Number: US-ABBVIE-20K-163-3336287-00

PATIENT
  Sex: Male

DRUGS (1)
  1. HUMIRA [Suspect]
     Active Substance: ADALIMUMAB
     Indication: PSORIASIS
     Route: 058

REACTIONS (8)
  - Coronary artery occlusion [Unknown]
  - Blood glucose decreased [Recovered/Resolved]
  - Nasopharyngitis [Recovered/Resolved]
  - Sneezing [Unknown]
  - Speech disorder [Unknown]
  - Cough [Unknown]
  - Loss of consciousness [Unknown]
  - Influenza like illness [Unknown]
